FAERS Safety Report 4970848-3 (Version None)
Quarter: 2006Q2

REPORT INFORMATION
  Report Type: 
  Country: None (occurrence: None)
  Receive Date: 20060412
  Receipt Date: 20060320
  Transmission Date: 20061013
  Serious: Yes (Other)
  Sender: FDA-Public Use
  Company Number: JP-AVENTIS-200610917JP

PATIENT
  Age: 57 Year
  Sex: Male

DRUGS (3)
  1. KETEK [Suspect]
     Indication: TONSILLITIS
     Route: 048
     Dates: start: 20030730
  2. MUCODYNE [Concomitant]
     Route: 048
     Dates: start: 20030730
  3. LOXONIN [Concomitant]
     Route: 048
     Dates: start: 20030730

REACTIONS (2)
  - DRUG ERUPTION [None]
  - LIVER DISORDER [None]
